FAERS Safety Report 6820020-7 (Version None)
Quarter: 2010Q3

REPORT INFORMATION
  Report Type: 
  Country: None (occurrence: None)
  Receive Date: 20100707
  Receipt Date: 20100628
  Transmission Date: 20110219
  Serious: Yes (Hospitalization)
  Sender: FDA-Public Use
  Company Number: DE-MPIJNJ-2010-03314

PATIENT

DRUGS (1)
  1. VELCADE [Suspect]
     Indication: MULTIPLE MYELOMA
     Dosage: 2.12 MG, UNK
     Route: 042
     Dates: start: 20090323, end: 20091228

REACTIONS (1)
  - GENERAL PHYSICAL HEALTH DETERIORATION [None]
